FAERS Safety Report 17041908 (Version 1)
Quarter: 2019Q4

REPORT INFORMATION
  Report Type: Report from Study
  Country: AR (occurrence: AR)
  Receive Date: 20191118
  Receipt Date: 20191118
  Transmission Date: 20200122
  Serious: Yes (Death, Hospitalization)
  Sender: FDA-Public Use
  Company Number: NVSC2019AR038013

PATIENT
  Sex: Female

DRUGS (2)
  1. AFINITOR [Suspect]
     Active Substance: EVEROLIMUS
     Indication: BREAST CANCER
     Dosage: 5 MG, QD
     Route: 065
     Dates: start: 20190408
  2. AFINITOR [Suspect]
     Active Substance: EVEROLIMUS
     Dosage: 10 UNK
     Route: 065
     Dates: end: 201905

REACTIONS (6)
  - Asthenia [Fatal]
  - Vomiting [Fatal]
  - Metastases to spine [Fatal]
  - Metastases to soft tissue [Fatal]
  - Nausea [Fatal]
  - Drug intolerance [Fatal]
